FAERS Safety Report 8482032-X (Version None)
Quarter: 2012Q3

REPORT INFORMATION
  Report Type: 
  Country: None (occurrence: None)
  Receive Date: 20120702
  Receipt Date: 20120627
  Transmission Date: 20120928
  Serious: Yes (Other)
  Sender: FDA-Public Use
  Company Number: PHHY2011CA96919

PATIENT
  Sex: Female

DRUGS (1)
  1. GILENYA [Suspect]
     Indication: RELAPSING-REMITTING MULTIPLE SCLEROSIS
     Dosage: 0.5 MG, DAILY
     Route: 048
     Dates: start: 20111017

REACTIONS (12)
  - ANGIOPATHY [None]
  - BURNING SENSATION [None]
  - SOMNOLENCE [None]
  - EYE PAIN [None]
  - HEADACHE [None]
  - LACRIMATION INCREASED [None]
  - FATIGUE [None]
  - RETINAL DISORDER [None]
  - COGNITIVE DISORDER [None]
  - CONFUSIONAL STATE [None]
  - BACK PAIN [None]
  - FEELING COLD [None]
